FAERS Safety Report 21910109 (Version 1)
Quarter: 2023Q1

REPORT INFORMATION
  Report Type: Spontaneous
  Country: US (occurrence: US)
  Receive Date: 20230125
  Receipt Date: 20230125
  Transmission Date: 20230418
  Serious: No
  Sender: FDA-Public Use
  Company Number: US-ALLERGAN-2203620US

PATIENT
  Age: 80 Year
  Sex: Female

DRUGS (2)
  1. BOTOX [Suspect]
     Active Substance: ONABOTULINUMTOXINA
     Indication: Torticollis
     Dosage: UNK, SINGLE
     Dates: start: 20211230, end: 20211230
  2. VITAMIN D3 [Concomitant]
     Active Substance: CHOLECALCIFEROL
     Indication: Vitamin D decreased
     Dosage: 2000 IU ONCE DAILY BY MOUTH
     Route: 048
     Dates: start: 2021

REACTIONS (7)
  - Wrong technique in product usage process [Unknown]
  - COVID-19 [Unknown]
  - Chills [Unknown]
  - Nasal congestion [Unknown]
  - Pyrexia [Unknown]
  - Headache [Unknown]
  - Dysphagia [Recovering/Resolving]

NARRATIVE: CASE EVENT DATE: 20220713
